FAERS Safety Report 15459054 (Version 1)
Quarter: 2018Q4

REPORT INFORMATION
  Report Type: Report from Study
  Country: CO (occurrence: CO)
  Receive Date: 20181003
  Receipt Date: 20181003
  Transmission Date: 20190204
  Serious: Yes (Hospitalization)
  Sender: FDA-Public Use
  Company Number: PHHY2018CO109930

PATIENT
  Age: 10 Year
  Sex: Female
  Weight: 35 kg

DRUGS (6)
  1. REVOLADE [Suspect]
     Active Substance: ELTROMBOPAG
     Dosage: 25 MG, TID  (3 TABLETS OF 25 MG DAILY)
     Route: 048
  2. REVOLADE [Suspect]
     Active Substance: ELTROMBOPAG
     Dosage: 25 MG, QID   (4 TABLETS OF 25 MG DAILY)
     Route: 048
  3. TRIMETHOPRIM. [Concomitant]
     Active Substance: TRIMETHOPRIM
     Indication: PRODUCT USED FOR UNKNOWN INDICATION
     Route: 065
  4. FLUCONAZOLE. [Concomitant]
     Active Substance: FLUCONAZOLE
     Indication: PRODUCT USED FOR UNKNOWN INDICATION
     Dosage: 200 MG, QD (DAILY)
     Route: 065
  5. REVOLADE [Suspect]
     Active Substance: ELTROMBOPAG
     Indication: APLASTIC ANAEMIA
     Dosage: 25 MG, BID (2 TABLETS OF 25 MG DAILY)
     Route: 048
     Dates: start: 20180530
  6. ACICLOVIR [Concomitant]
     Active Substance: ACYCLOVIR
     Indication: PRODUCT USED FOR UNKNOWN INDICATION
     Dosage: 200 MG, BID (EVERY 12 HOURS)
     Route: 065

REACTIONS (1)
  - Platelet count increased [Unknown]

NARRATIVE: CASE EVENT DATE: 20180819
